FAERS Safety Report 16743353 (Version 6)
Quarter: 2020Q4

REPORT INFORMATION
  Report Type: Report from Study
  Country: US (occurrence: US)
  Receive Date: 20190827
  Receipt Date: 20201120
  Transmission Date: 20210113
  Serious: Yes (Hospitalization, Other)
  Sender: FDA-Public Use
  Company Number: PHEH2019US035267

PATIENT
  Sex: Female

DRUGS (2)
  1. LASIX [Concomitant]
     Active Substance: FUROSEMIDE
     Indication: PRODUCT USED FOR UNKNOWN INDICATION
     Dosage: UNK
     Route: 065
  2. GILENYA [Suspect]
     Active Substance: FINGOLIMOD HYDROCHLORIDE
     Indication: RELAPSING-REMITTING MULTIPLE SCLEROSIS
     Dosage: 0.5 MG, QD
     Route: 048
     Dates: start: 20190522

REACTIONS (7)
  - Lymphocyte count decreased [Unknown]
  - Multiple sclerosis [Unknown]
  - Alopecia [Not Recovered/Not Resolved]
  - Influenza [Unknown]
  - Fatigue [Unknown]
  - Peripheral swelling [Unknown]
  - Tremor [Not Recovered/Not Resolved]
